FAERS Safety Report 7016201-2 (Version None)
Quarter: 2010Q3

REPORT INFORMATION
  Report Type: 
  Country: None (occurrence: None)
  Receive Date: 20100927
  Receipt Date: 20100212
  Transmission Date: 20110219
  Serious: No
  Sender: FDA-Public Use
  Company Number: US-ASTRAZENECA-2010SE06499

PATIENT
  Age: 16805 Day
  Sex: Female
  Weight: 69.4 kg

DRUGS (11)
  1. ARIMIDEX [Suspect]
     Indication: BREAST CANCER
     Route: 048
     Dates: start: 20090201
  2. FISH OIL [Concomitant]
     Indication: CARDIOVASCULAR EVENT PROPHYLAXIS
  3. FLAX SEED [Concomitant]
  4. FOLIC ACID [Concomitant]
  5. LORAZEPAM [Concomitant]
  6. ZYRTEC [Concomitant]
     Indication: MULTIPLE ALLERGIES
  7. ASPIRIN [Concomitant]
     Indication: CARDIOVASCULAR EVENT PROPHYLAXIS
  8. RAMIPRIL [Concomitant]
  9. LOVASA [Concomitant]
  10. PREDNISONE TAPE [Concomitant]
  11. CARDIODIVADOL [Concomitant]

REACTIONS (1)
  - TINNITUS [None]
